FAERS Safety Report 8806847 (Version 1)
Quarter: 2012Q4

REPORT INFORMATION
  Report Type: 
  Country: US (occurrence: US)
  Receive Date: 20120925
  Receipt Date: 20120925
  Transmission Date: 20130627
  Serious: Yes (Other)
  Sender: FDA-Public Use
  Company Number: US-ELI_LILLY_AND_COMPANY-US201209005758

PATIENT
  Sex: Female
  Weight: 110 kg

DRUGS (2)
  1. ADCIRCA [Suspect]
     Dosage: UNK, unknown
     Route: 065
  2. TYVASO [Concomitant]
     Indication: PULMONARY ARTERIAL HYPERTENSION
     Dosage: UNK, qid
     Dates: start: 20120904

REACTIONS (1)
  - Heart rate decreased [Unknown]
